FAERS Safety Report 8624467-8 (Version None)
Quarter: 2012Q3

REPORT INFORMATION
  Report Type: 
  Country: None (occurrence: None)
  Receive Date: 20120827
  Receipt Date: 20120818
  Transmission Date: 20120928
  Serious: Yes (Hospitalization, Other)
  Sender: FDA-Public Use
  Company Number: US-MPIJNJ-2012-05549

PATIENT
  Age: 75 Year
  Sex: Male
  Weight: 97 kg

DRUGS (3)
  1. BENDAMUSTINE HYDROCHLORIDE [Suspect]
     Indication: LYMPHOMA
     Dosage: 90 MG/M2, CYCLIC
     Route: 042
     Dates: start: 20120802, end: 20120806
  2. VELCADE [Suspect]
     Indication: LYMPHOMA
     Dosage: 1.6 MG/M2, CYCLIC
     Route: 042
     Dates: end: 20120806
  3. OFATUMUMAB [Suspect]
     Indication: LYMPHOMA
     Dosage: 300 MG, CYCLIC
     Route: 042
     Dates: start: 20120802, end: 20120806

REACTIONS (3)
  - HYPERTHYROIDISM [None]
  - ATRIAL FIBRILLATION [None]
  - ANAPHYLACTIC REACTION [None]
